FAERS Safety Report 13958386 (Version 1)
Quarter: 2017Q3

REPORT INFORMATION
  Report Type: Spontaneous
  Country: US (occurrence: US)
  Receive Date: 20170911
  Receipt Date: 20170911
  Transmission Date: 20171128
  Serious: No
  Sender: FDA-Public Use
  Company Number: US-ROCHE-1130794

PATIENT
  Age: 84 Year
  Sex: Male

DRUGS (2)
  1. RITUXAN [Suspect]
     Active Substance: RITUXIMAB
     Indication: WALDENSTROM^S MACROGLOBULINAEMIA
     Route: 065
     Dates: start: 20000322
  2. RITUXAN [Suspect]
     Active Substance: RITUXIMAB
     Dosage: 482-362
     Route: 065

REACTIONS (2)
  - Oropharyngeal pain [Unknown]
  - Odynophagia [Unknown]

NARRATIVE: CASE EVENT DATE: 20000609
